FAERS Safety Report 4906952-5 (Version None)
Quarter: 2006Q1

REPORT INFORMATION
  Report Type: 
  Country: None (occurrence: None)
  Receive Date: 20060207
  Receipt Date: 20060202
  Transmission Date: 20060701
  Serious: Yes (Other)
  Sender: FDA-Public Use
  Company Number: HQWYE636503FEB06

PATIENT
  Age: 75 Year
  Sex: Female

DRUGS (10)
  1. AMIODARONE HCL [Suspect]
     Indication: ARRHYTHMIA
     Dosage: 400 MG 1X PER 1 DAY, 200 MG 1X PER 1 DAY
     Route: 048
     Dates: start: 20060105, end: 20060118
  2. AMIODARONE HCL [Suspect]
     Indication: ARRHYTHMIA
     Dosage: 400 MG 1X PER 1 DAY, 200 MG 1X PER 1 DAY
     Route: 048
     Dates: start: 20060119, end: 20060123
  3. MUCOSTAN (REBAMIPIDE) [Concomitant]
  4. FUROSEMIDE [Concomitant]
  5. ALDACTONE [Concomitant]
  6. AMOBAN (ZOPICLONE) [Concomitant]
  7. TORSEMIDE [Concomitant]
  8. WARFARIN SODIUM [Concomitant]
  9. RABEPRAZOLE SODIUM [Concomitant]
  10. BAYASPIRINA(ACETYLSALICYLIC ACID) [Concomitant]

REACTIONS (2)
  - NEUTROPHIL COUNT DECREASED [None]
  - WHITE BLOOD CELL COUNT DECREASED [None]
